FAERS Safety Report 4492079-6 (Version None)
Quarter: 2004Q4

REPORT INFORMATION
  Report Type: 
  Country: None (occurrence: None)
  Receive Date: 20041029
  Receipt Date: 20041013
  Transmission Date: 20050328
  Serious: Yes (Hospitalization)
  Sender: FDA-Public Use
  Company Number: 2004-BP-09887AU

PATIENT
  Age: 68 Year
  Sex: Female

DRUGS (1)
  1. SPIRIVA [Suspect]
     Indication: CHRONIC OBSTRUCTIVE AIRWAYS DISEASE
     Dosage: 18 MCG 1(8 MG ONCE DAILY) IH
     Route: 055
     Dates: start: 20040914, end: 20040915

REACTIONS (5)
  - DIZZINESS [None]
  - HYPOTENSION [None]
  - PALLOR [None]
  - PALPITATIONS [None]
  - TACHYCARDIA [None]
